FAERS Safety Report 19074476 (Version 1)
Quarter: 2021Q1

REPORT INFORMATION
  Report Type: Spontaneous
  Country: FR (occurrence: FR)
  Receive Date: 20210330
  Receipt Date: 20210330
  Transmission Date: 20210420
  Serious: Yes (Hospitalization, Other)
  Sender: FDA-Public Use
  Company Number: FR-PFIZER INC-2021309248

PATIENT
  Age: 46 Year
  Sex: Female

DRUGS (10)
  1. COCAINE [Suspect]
     Active Substance: COCAINE
     Dosage: UNK
     Dates: start: 2019
  2. ALCOOL [Suspect]
     Active Substance: ALCOHOL
     Dosage: 3 TO 4 IU EVERY WEEK
     Dates: start: 1993
  3. XANAX [Suspect]
     Active Substance: ALPRAZOLAM
     Dosage: 2 DF, 1X/DAY
     Route: 048
     Dates: start: 2003, end: 2018
  4. ALCOOL [Suspect]
     Active Substance: ALCOHOL
     Dosage: 2 TO 3 TIMES PER WEEK
  5. LSD [Suspect]
     Active Substance: LYSERGIDE
     Dosage: UNK
     Dates: start: 2019
  6. METHYLENEDIOXYMETHAMPHETAMINE [Suspect]
     Active Substance: MIDOMAFETAMINE
     Dosage: 1 DF 2 MONTHS
     Dates: start: 2019
  7. CANNABIS [Suspect]
     Active Substance: CANNABIS SATIVA SUBSP. INDICA TOP
     Dosage: 2 DF PER YEAR
     Route: 048
  8. TOBACCO [Suspect]
     Active Substance: TOBACCO LEAF
     Indication: TOBACCO USER
     Dosage: 4 TO 5 CIGARETTES / DAY AND 1.5 MG OF E?CIGARETTES
     Route: 055
     Dates: start: 1991
  9. ALCOOL [Suspect]
     Active Substance: ALCOHOL
     Dosage: 4 TO 5 IU PER DAY
     Dates: start: 2004
  10. ALCOOL [Suspect]
     Active Substance: ALCOHOL
     Dosage: 9 IU, 1X/DAY
     Route: 048

REACTIONS (8)
  - Withdrawal syndrome [Not Recovered/Not Resolved]
  - Tremor [Not Recovered/Not Resolved]
  - Drug abuse [Not Recovered/Not Resolved]
  - Depression [Unknown]
  - Hyperhidrosis [Not Recovered/Not Resolved]
  - Bipolar disorder [Unknown]
  - Housebound [Recovered/Resolved]
  - Suicide attempt [Unknown]

NARRATIVE: CASE EVENT DATE: 2004
